FAERS Safety Report 25141462 (Version 1)
Quarter: 2025Q1

REPORT INFORMATION
  Report Type: Spontaneous
  Country: BR (occurrence: BR)
  Receive Date: 20250331
  Receipt Date: 20250331
  Transmission Date: 20250408
  Serious: Yes (Other)
  Sender: BAYER HEALTHCARE PHARMACEUTICALS INC.
  Company Number: BR-BAYER-2025A040209

PATIENT
  Age: 80 Year
  Sex: Female

DRUGS (4)
  1. FINERENONE [Suspect]
     Active Substance: FINERENONE
     Dosage: 10 MG, QD
  2. FINERENONE [Suspect]
     Active Substance: FINERENONE
     Dosage: 10 MG, TID
  3. OLMESARTAN [Concomitant]
     Active Substance: OLMESARTAN
  4. DAPAGLIFLOZIN [Concomitant]
     Active Substance: DAPAGLIFLOZIN

REACTIONS (3)
  - Blood creatinine increased [Recovered/Resolved]
  - Blood urea increased [Recovered/Resolved]
  - Blood potassium increased [Recovered/Resolved]

NARRATIVE: CASE EVENT DATE: 20250321
